FAERS Safety Report 7809201-3 (Version None)
Quarter: 2011Q4

REPORT INFORMATION
  Report Type: 
  Country: None (occurrence: None)
  Receive Date: 20111012
  Receipt Date: 20111005
  Transmission Date: 20120403
  Serious: Yes (Other)
  Sender: FDA-Public Use
  Company Number: US-JNJFOC-20111003468

PATIENT
  Age: 63 Year
  Sex: Female

DRUGS (1)
  1. NUCYNTA IR [Suspect]
     Indication: PROCEDURAL PAIN
     Route: 048

REACTIONS (6)
  - FEELING ABNORMAL [None]
  - HYPERTENSION [None]
  - HYPERSENSITIVITY [None]
  - STOMATITIS [None]
  - VISION BLURRED [None]
  - OROPHARYNGEAL BLISTERING [None]
